FAERS Safety Report 5407940-5 (Version None)
Quarter: 2007Q3

REPORT INFORMATION
  Report Type: 
  Country: None (occurrence: None)
  Receive Date: 20070803
  Receipt Date: 20070718
  Transmission Date: 20080115
  Serious: Yes (Congenital Anomaly)
  Sender: FDA-Public Use
  Company Number: 8025524

PATIENT
  Sex: Male

DRUGS (3)
  1. KEPPRA [Suspect]
     Dosage: TRP
     Route: 064
     Dates: start: 20060308
  2. FOLIC ACID [Concomitant]
  3. PRENATAL VITAMINS [Concomitant]

REACTIONS (2)
  - DRUG EXPOSURE DURING PREGNANCY [None]
  - SPINA BIFIDA [None]
